FAERS Safety Report 6185851-8 (Version None)
Quarter: 2009Q2

REPORT INFORMATION
  Report Type: 
  Country: None (occurrence: None)
  Receive Date: 20090511
  Receipt Date: 20090501
  Transmission Date: 20091009
  Serious: Yes (Disabling)
  Sender: FDA-Public Use
  Company Number: A0781641A

PATIENT
  Age: 52 Year
  Sex: Female

DRUGS (4)
  1. TYKERB [Suspect]
     Indication: BREAST CANCER
     Dosage: 1250MG PER DAY
     Route: 048
     Dates: start: 20081206, end: 20090426
  2. XELODA [Concomitant]
  3. BLINDED STUDY MEDICATION [Concomitant]
  4. OTHER MEDICATIONS [Concomitant]

REACTIONS (9)
  - DIARRHOEA [None]
  - DISEASE PROGRESSION [None]
  - DYSARTHRIA [None]
  - FATIGUE [None]
  - METASTASES TO CENTRAL NERVOUS SYSTEM [None]
  - MUSCULAR WEAKNESS [None]
  - NAIL BED BLEEDING [None]
  - ONYCHOCLASIS [None]
  - VISION BLURRED [None]
